FAERS Safety Report 17729190 (Version 2)
Quarter: 2020Q3

REPORT INFORMATION
  Report Type: Spontaneous
  Country: DE (occurrence: DE)
  Receive Date: 20200430
  Receipt Date: 20200706
  Transmission Date: 20201102
  Serious: Yes (Other)
  Sender: FDA-Public Use
  Company Number: DE-PFIZER INC-2020171947

PATIENT
  Sex: Male

DRUGS (1)
  1. CYTOTEC [Suspect]
     Active Substance: MISOPROSTOL
     Indication: LABOUR INDUCTION
     Dosage: 50 UG
     Route: 064
     Dates: start: 20120720

REACTIONS (4)
  - Foetal exposure during delivery [Recovered/Resolved with Sequelae]
  - Intellectual disability [Recovered/Resolved with Sequelae]
  - Irritability [Recovered/Resolved with Sequelae]
  - Disturbance in attention [Recovered/Resolved with Sequelae]

NARRATIVE: CASE EVENT DATE: 20120720
